FAERS Safety Report 4439102-2 (Version None)
Quarter: 2004Q3

REPORT INFORMATION
  Report Type: 
  Country: None (occurrence: None)
  Receive Date: 20040901
  Receipt Date: 20040827
  Transmission Date: 20050211
  Serious: Yes (Life-Threatening, Hospitalization)
  Sender: FDA-Public Use
  Company Number: US-BRISTOL-MYERS SQUIBB COMPANY-12685137

PATIENT
  Sex: Male
  Weight: 78 kg

DRUGS (9)
  1. ERBITUX [Suspect]
     Indication: COLORECTAL CANCER METASTATIC
     Dosage: 1ST DOSE
     Route: 042
     Dates: start: 20040826, end: 20040826
  2. ASPIRIN [Concomitant]
  3. AVANDAMET [Concomitant]
  4. AVINZA [Concomitant]
  5. GLIPIZIDE [Concomitant]
  6. PROTONIX [Concomitant]
  7. ZOLOFT [Concomitant]
  8. ULTRACET [Concomitant]
  9. XANAX [Concomitant]

REACTIONS (2)
  - CONVULSION [None]
  - RESPIRATORY ARREST [None]
